FAERS Safety Report 8604650-8 (Version None)
Quarter: 2012Q3

REPORT INFORMATION
  Report Type: 
  Country: None (occurrence: None)
  Receive Date: 20120820
  Receipt Date: 20120814
  Transmission Date: 20120928
  Serious: Yes (Hospitalization)
  Sender: FDA-Public Use
  Company Number: PHHY2012VE020992

PATIENT
  Sex: Female

DRUGS (3)
  1. SYNCORTYL [Concomitant]
     Indication: ASTHMATIC CRISIS
     Dosage: UNK UKN, UNK
  2. ZOLEDRONOC ACID [Suspect]
     Indication: OSTEOPOROSIS
     Dosage: 5 MG, YEARLY
     Route: 042
     Dates: start: 20110225
  3. MAXIBOL [Concomitant]
     Dosage: 5 MG, UNK

REACTIONS (6)
  - ALOPECIA [None]
  - AMOEBIASIS [None]
  - THROMBOSIS [None]
  - PAIN IN EXTREMITY [None]
  - ONYCHOCLASIS [None]
  - DEHYDRATION [None]
